FAERS Safety Report 9549469 (Version 1)
Quarter: 2013Q3

REPORT INFORMATION
  Report Type: Spontaneous
  Country: PL (occurrence: None)
  Receive Date: 20130919
  Receipt Date: 20130919
  Transmission Date: 20140515
  Serious: Yes (Other)
  Sender: FDA-Public Use
  Company Number: 2013000249

PATIENT
  Age: 61 Year
  Sex: Female

DRUGS (8)
  1. ACEON [Suspect]
     Indication: HYPERTENSION
     Route: 048
  2. CONCOR (BISOPROLOL FUMARATE) [Concomitant]
  3. ENCORTON (PREDNISONE ACETATE) [Concomitant]
  4. OLFEN-75 (DICLOFENAC SODIUM, LIDOCAINE HYDROCHLORIDE MONOHYDRATE) [Concomitant]
  5. XANAX (ALPRAZOLAM) [Concomitant]
  6. OSTRACAL (CALCIUM, COLECALCIFEROL) TABLET [Concomitant]
  7. FUROSEMID (FUROSEMID) TABLET 40MG [Concomitant]
  8. NOLPAZA (PANTOPRAZOLE SODIUM) 20MG [Concomitant]

REACTIONS (5)
  - Stridor [None]
  - Erythema [None]
  - Pruritus [None]
  - Angioedema [None]
  - Rash [None]
